FAERS Safety Report 4803292-X (Version None)
Quarter: 2005Q4

REPORT INFORMATION
  Report Type: 
  Country: None (occurrence: None)
  Receive Date: 20051013
  Receipt Date: 20050930
  Transmission Date: 20060501
  Serious: Yes (Hospitalization)
  Sender: FDA-Public Use
  Company Number: 2005PV000813

PATIENT
  Age: 41 Year
  Sex: Female
  Weight: 124.7392 kg

DRUGS (17)
  1. BYETTA [Suspect]
     Indication: DIABETES MELLITUS NON-INSULIN-DEPENDENT
     Dosage: SEE IMAGE
     Dates: start: 20050731, end: 20050801
  2. BYETTA [Suspect]
     Indication: DIABETES MELLITUS NON-INSULIN-DEPENDENT
     Dosage: SEE IMAGE
     Dates: start: 20050801
  3. HUMALOG [Concomitant]
  4. GLIPIZIDE [Concomitant]
  5. KADIAN [Concomitant]
  6. METFORMIN [Concomitant]
  7. POTASSIUM [Concomitant]
  8. BACLOFEN [Concomitant]
  9. SONATA [Concomitant]
  10. TOPAMAX [Concomitant]
  11. NEXIUM [Concomitant]
  12. LANTUS [Concomitant]
  13. GLYCOLAX [Concomitant]
  14. LIDODERM [Concomitant]
  15. COMBIVENT [Concomitant]
  16. TRIAMTERENE [Concomitant]
  17. BUMEX [Concomitant]

REACTIONS (13)
  - ASPIRATION [None]
  - ASTHENIA [None]
  - ASTHMA [None]
  - DECREASED APPETITE [None]
  - DRUG INEFFECTIVE [None]
  - FATIGUE [None]
  - FLUID RETENTION [None]
  - GASTROOESOPHAGEAL REFLUX DISEASE [None]
  - HYPERGLYCAEMIA [None]
  - MALAISE [None]
  - NAUSEA [None]
  - TOOTHACHE [None]
  - WEIGHT INCREASED [None]
